FAERS Safety Report 7265393-9 (Version None)
Quarter: 2011Q1

REPORT INFORMATION
  Report Type: 
  Country: None (occurrence: None)
  Receive Date: 20110131
  Receipt Date: 20110118
  Transmission Date: 20110831
  Serious: Yes (Congenital Anomaly)
  Sender: FDA-Public Use
  Company Number: FR-ROCHE-754431

PATIENT
  Sex: Female

DRUGS (1)
  1. TAMIFLU [Suspect]
     Dosage: DOSE: 1-2, FREQUENCY: DAILY. START DATE: 8TH WEEK OF AMENORRHEA. STOP DATE: 9TH WEEK OF AMENORRHEA.
     Route: 048

REACTIONS (2)
  - ABORTION INDUCED [None]
  - FOETAL MALFORMATION [None]
